FAERS Safety Report 21291699 (Version 1)
Quarter: 2022Q3

REPORT INFORMATION
  Report Type: Spontaneous
  Country: US (occurrence: US)
  Receive Date: 20220903
  Receipt Date: 20220903
  Transmission Date: 20221027
  Serious: Yes (Other)
  Sender: FDA-Public Use
  Company Number: US-SA-SAC20220901001501

PATIENT
  Sex: Female

DRUGS (2)
  1. ZANTAC [Suspect]
     Active Substance: RANITIDINE HYDROCHLORIDE
     Dosage: UNK, PRESCRIPTION ZANTAC FROM APPROXIMATELY 2005 TO 2009
     Route: 048
     Dates: start: 2005, end: 2009
  2. RANITIDINE HYDROCHLORIDE [Suspect]
     Active Substance: RANITIDINE HYDROCHLORIDE
     Dosage: UNK, PRESCRIPTION RANITIDINE FROM APPROXIMATELY 2005 TO 2009
     Route: 048
     Dates: start: 2005, end: 2009

REACTIONS (2)
  - Breast cancer female [Unknown]
  - Ovarian cancer [Unknown]
